FAERS Safety Report 9500586 (Version 2)
Quarter: 2013Q3

REPORT INFORMATION
  Report Type: Spontaneous
  Country: CA (occurrence: CA)
  Receive Date: 20130905
  Receipt Date: 20130905
  Transmission Date: 20140515
  Serious: Yes (Death)
  Sender: FDA-Public Use
  Company Number: CA-SANOFI-AVENTIS-2013SA050705

PATIENT
  Age: 81 Year
  Sex: Female

DRUGS (3)
  1. LOVENOX [Suspect]
     Indication: THROMBOSIS PROPHYLAXIS
     Route: 058
     Dates: start: 201303
  2. NEUPOGEN [Concomitant]
     Route: 058
  3. PREDNISONE [Concomitant]
     Indication: NEOPLASM MALIGNANT
     Route: 048

REACTIONS (4)
  - Lymphoma [Fatal]
  - Disease progression [Fatal]
  - Injection site bruising [Not Recovered/Not Resolved]
  - Injection site pain [Recovering/Resolving]
